FAERS Safety Report 5280837-X (Version None)
Quarter: 2007Q1

REPORT INFORMATION
  Report Type: 
  Country: None (occurrence: None)
  Receive Date: 20070329
  Receipt Date: 20070319
  Transmission Date: 20070707
  Serious: Yes (Disabling)
  Sender: FDA-Public Use
  Company Number: 2007UW05421

PATIENT
  Age: 50 Year
  Sex: Female

DRUGS (10)
  1. CRESTOR [Suspect]
     Route: 048
     Dates: start: 20031101, end: 20061218
  2. ZOCOR [Concomitant]
     Dates: start: 20020501, end: 20030601
  3. LIPITOR [Concomitant]
     Dates: start: 20030601, end: 20030801
  4. ZESTRIL [Concomitant]
  5. VERELAN [Concomitant]
  6. ASPIRIN [Concomitant]
  7. MAXEPA [Concomitant]
     Route: 048
  8. SYNTHROID [Concomitant]
     Dates: start: 20060101
  9. VICOPROFEN [Concomitant]
  10. ORUDIS [Concomitant]
     Indication: HEADACHE

REACTIONS (2)
  - MYOPATHY [None]
  - NEUROPATHY PERIPHERAL [None]
